FAERS Safety Report 5897285-1 (Version None)
Quarter: 2008Q3

REPORT INFORMATION
  Report Type: 
  Country: None (occurrence: None)
  Receive Date: 20080924
  Receipt Date: 20080924
  Transmission Date: 20090109
  Serious: Yes (Life-Threatening, Hospitalization)
  Sender: FDA-Public Use
  Company Number: None

PATIENT
  Age: 80 Year
  Sex: Female

DRUGS (2)
  1. DARVOCET [Suspect]
     Indication: PAIN
     Dosage: 16 DARVOCET TABS PER BOWEL PREP FREQUENCY PO ONE EVENING
     Route: 048
     Dates: start: 20080701
  2. VISICOL [Suspect]
     Indication: BOWEL PREPARATION
     Dosage: ONE EVENING
     Dates: start: 20080701

REACTIONS (3)
  - ACCIDENTAL EXPOSURE [None]
  - THERAPEUTIC AGENT TOXICITY [None]
  - WRONG DRUG ADMINISTERED [None]
